FAERS Safety Report 4567018-X (Version None)
Quarter: 2005Q1

REPORT INFORMATION
  Report Type: 
  Country: None (occurrence: None)
  Receive Date: 20050201
  Receipt Date: 20040618
  Transmission Date: 20050727
  Serious: No
  Sender: FDA-Public Use
  Company Number: US-BRISTOL-MYERS SQUIBB COMPANY-12619078

PATIENT
  Sex: Male

DRUGS (1)
  1. STADOL [Suspect]
     Dosage: DURATION: ^MANY YEARS.^
     Route: 045

REACTIONS (3)
  - COGNITIVE DISORDER [None]
  - DIZZINESS [None]
  - VISION BLURRED [None]
